FAERS Safety Report 18258116 (Version 2)
Quarter: 2021Q2

REPORT INFORMATION
  Report Type: Report from Study
  Country: CA (occurrence: CA)
  Receive Date: 20200911
  Receipt Date: 20210616
  Transmission Date: 20210717
  Serious: Yes (Other)
  Sender: FDA-Public Use
  Company Number: CA-JNJFOC-20200301288

PATIENT
  Age: 13 Year
  Sex: Female
  Weight: 72 kg

DRUGS (2)
  1. REMICADE [Suspect]
     Active Substance: INFLIXIMAB
     Indication: CENTRAL NERVOUS SYSTEM VASCULITIS
     Dosage: ON 09?JUN?2021 THE PATIENT RECEIVED THE APPROVAL FOR INDICATION.
     Route: 042
     Dates: start: 20191021
  2. REMICADE [Suspect]
     Active Substance: INFLIXIMAB
     Indication: VASCULITIS

REACTIONS (3)
  - Pneumonia [Recovered/Resolved]
  - Product use in unapproved indication [Unknown]
  - Off label use [Unknown]
